FAERS Safety Report 10085799 (Version 1)
Quarter: 2014Q2

REPORT INFORMATION
  Report Type: Spontaneous
  Country: US (occurrence: None)
  Receive Date: 20140416
  Receipt Date: 20140416
  Transmission Date: 20141212
  Serious: Yes (Disabling, Other)
  Sender: FDA-Public Use
  Company Number: AUR-APL-2009-00320

PATIENT
  Age: 16 Year
  Sex: Male

DRUGS (2)
  1. METRONIDAZOLE [Suspect]
     Indication: PRODUCT USED FOR UNKNOWN INDICATION
     Route: 042
     Dates: start: 20090408, end: 20090408
  2. CEFUROXIME AXETIL [Suspect]
     Indication: POSTOPERATIVE CARE
     Route: 042
     Dates: start: 20090408, end: 20090408

REACTIONS (6)
  - Flushing [None]
  - Infusion site inflammation [None]
  - Infusion site pain [None]
  - Rash [None]
  - Tachycardia [None]
  - Tachypnoea [None]
